FAERS Safety Report 7093297-3 (Version None)
Quarter: 2010Q4

REPORT INFORMATION
  Report Type: 
  Country: None (occurrence: None)
  Receive Date: 20101110
  Receipt Date: 20100122
  Transmission Date: 20110411
  Serious: No
  Sender: FDA-Public Use
  Company Number: US-PFIZER INC-2010010316

PATIENT
  Sex: Male

DRUGS (2)
  1. BEXTRA [Suspect]
     Dosage: UNK
     Route: 048
     Dates: start: 20040101, end: 20080101
  2. CELEBREX [Suspect]
     Indication: BACK PAIN
     Dosage: UNK
     Route: 048
     Dates: start: 20050101, end: 20080101

REACTIONS (4)
  - DIZZINESS [None]
  - HEADACHE [None]
  - NAUSEA [None]
  - VOMITING [None]
